FAERS Safety Report 18651039 (Version 1)
Quarter: 2020Q4

REPORT INFORMATION
  Report Type: Spontaneous
  Country: FR (occurrence: FR)
  Receive Date: 20201222
  Receipt Date: 20201222
  Transmission Date: 20210114
  Serious: Yes (Other)
  Sender: FDA-Public Use
  Company Number: FR-MYLANLABS-2020M1103662

PATIENT
  Age: 57 Year
  Sex: Male
  Weight: 80 kg

DRUGS (2)
  1. MORPHINE [Suspect]
     Active Substance: MORPHINE
     Indication: PAIN
     Dosage: UNK
     Dates: start: 20201016, end: 20201116
  2. CISPLATIN. [Suspect]
     Active Substance: CISPLATIN
     Indication: OROPHARYNGEAL CANCER
     Dosage: 1 DOSAGE FORM, CYCLE
     Route: 041
     Dates: start: 20201020, end: 20201020

REACTIONS (3)
  - Neutropenia [Recovering/Resolving]
  - Anaemia [Recovering/Resolving]
  - Rash [Recovering/Resolving]

NARRATIVE: CASE EVENT DATE: 20201030
